FAERS Safety Report 17243279 (Version 1)
Quarter: 2019Q4

REPORT INFORMATION
  Report Type: Spontaneous
  Country: US (occurrence: US)
  Receive Date: 20191212
  Receipt Date: 20191212
  Transmission Date: 20200122
  Serious: No
  Sender: FDA-Public Use
  Company Number: None

PATIENT
  Age: 65 Year
  Sex: Female

DRUGS (4)
  1. LYRICA [Concomitant]
     Active Substance: PREGABALIN
  2. KISQALI [Suspect]
     Active Substance: RIBOCICLIB
     Indication: BREAST CANCER
     Route: 048
     Dates: start: 201906
  3. LISINOPRIL. [Concomitant]
     Active Substance: LISINOPRIL
  4. DULOEXTINE [Concomitant]

REACTIONS (2)
  - Neuropathy peripheral [None]
  - Oedema [None]

NARRATIVE: CASE EVENT DATE: 20191212
